FAERS Safety Report 9068362 (Version 1)
Quarter: 2013Q1

REPORT INFORMATION
  Report Type: Report from Study
  Country: DE (occurrence: DE)
  Receive Date: 20130128
  Receipt Date: 20130128
  Transmission Date: 20140127
  Serious: Yes (Hospitalization)
  Sender: FDA-Public Use
  Company Number: DE-ROCHE-1182229

PATIENT
  Age: 78 None
  Sex: Female
  Weight: 62 kg

DRUGS (5)
  1. BEVACIZUMAB [Suspect]
     Indication: BREAST CANCER
     Dosage: LAST DOSE PRIOR TO EVENT 22/NOV/2012
     Route: 042
     Dates: start: 20110722
  2. CAPECITABINE [Suspect]
     Indication: BREAST CANCER
     Dosage: ON 05/DEC/2012 CURRENT CYCLE COMPLETED
     Route: 048
     Dates: start: 20110722
  3. THYROXIN [Suspect]
     Indication: HYPOTHYROIDISM
     Route: 048
  4. NOVALGIN [Suspect]
     Indication: PAIN
     Route: 048
  5. BISOPROLOL [Concomitant]
     Indication: HYPERTENSION
     Route: 048

REACTIONS (3)
  - Hypertension [Recovered/Resolved]
  - Hyponatraemia [Unknown]
  - Hypokalaemia [Unknown]
